FAERS Safety Report 23913803 (Version 1)
Quarter: 2024Q2

REPORT INFORMATION
  Report Type: Spontaneous
  Country: CN (occurrence: None)
  Receive Date: 20240529
  Receipt Date: 20240529
  Transmission Date: 20240716
  Serious: Yes (Other)
  Sender: FDA-Public Use
  Company Number: CN-ROCHE-3567494

PATIENT
  Age: 59 Year
  Sex: Female
  Weight: 84 kg

DRUGS (1)
  1. TECENTRIQ [Suspect]
     Active Substance: ATEZOLIZUMAB
     Indication: Lung adenocarcinoma recurrent
     Route: 041
     Dates: start: 20240415

REACTIONS (2)
  - Myelosuppression [Recovering/Resolving]
  - Neurone-specific enolase increased [Unknown]

NARRATIVE: CASE EVENT DATE: 20240512
